FAERS Safety Report 8022310-1 (Version None)
Quarter: 2012Q1

REPORT INFORMATION
  Report Type: 
  Country: None (occurrence: None)
  Receive Date: 20120104
  Receipt Date: 20111221
  Transmission Date: 20120608
  Serious: Yes (Hospitalization)
  Sender: FDA-Public Use
  Company Number: PHHY2011US112193

PATIENT
  Age: 60 Year
  Sex: Male

DRUGS (8)
  1. BASILIXIMAB [Suspect]
     Indication: RENAL TRANSPLANT
  2. METHYLPREDNISOLONE [Concomitant]
  3. MYCOPHENOLATE MOFETIL [Suspect]
     Indication: RENAL TRANSPLANT
  4. TACROLIMUS [Concomitant]
  5. ASPIRIN [Concomitant]
  6. BETA BLOCKING AGENTS [Concomitant]
  7. CLOPIDOGREL [Concomitant]
  8. HEPARIN [Concomitant]
     Route: 042

REACTIONS (12)
  - ACUTE MYOCARDIAL INFARCTION [None]
  - CHEST PAIN [None]
  - ABDOMINAL REBOUND TENDERNESS [None]
  - APPENDICITIS PERFORATED [None]
  - SYNCOPE [None]
  - OLIGURIA [None]
  - CORONARY ARTERY STENOSIS [None]
  - ABDOMINAL PAIN [None]
  - GASTROINTESTINAL OEDEMA [None]
  - INTRA-ABDOMINAL HAEMATOMA [None]
  - ENTEROCOCCAL INFECTION [None]
  - BLOOD CREATININE INCREASED [None]
